FAERS Safety Report 24946108 (Version 1)
Quarter: 2025Q1

REPORT INFORMATION
  Report Type: Spontaneous
  Country: CN (occurrence: CN)
  Receive Date: 20250210
  Receipt Date: 20250210
  Transmission Date: 20250409
  Serious: Yes (Hospitalization, Other)
  Sender: ALKEM
  Company Number: None

PATIENT
  Age: 52 Year
  Sex: Female

DRUGS (9)
  1. AZATHIOPRINE [Suspect]
     Active Substance: AZATHIOPRINE
     Indication: Immune thrombocytopenia
     Route: 065
  2. LINEZOLID [Suspect]
     Active Substance: LINEZOLID
     Indication: Pulmonary nocardiosis
     Route: 048
     Dates: start: 20230805
  3. METHYLPREDNISOLONE [Suspect]
     Active Substance: METHYLPREDNISOLONE
     Indication: Immune thrombocytopenia
     Dosage: 20 MILLIGRAM, QD (EVERY 1 DAY)
     Route: 065
  4. BARICITINIB [Suspect]
     Active Substance: BARICITINIB
     Indication: Immune thrombocytopenia
     Route: 065
  5. CYCLOSPORINE [Suspect]
     Active Substance: CYCLOSPORINE
     Indication: Immune thrombocytopenia
     Dosage: 125 MILLIGRAM, QD (EVERY 1 DAY)
     Route: 065
  6. CYCLOSPORINE [Suspect]
     Active Substance: CYCLOSPORINE
     Route: 065
  7. METHOTREXATE [Suspect]
     Active Substance: METHOTREXATE
     Indication: Immune thrombocytopenia
     Route: 065
  8. SULFAMETHOXAZOLE\TRIMETHOPRIM [Suspect]
     Active Substance: SULFAMETHOXAZOLE\TRIMETHOPRIM
     Indication: Pulmonary nocardiosis
     Route: 048
     Dates: start: 20230713
  9. MOXIFLOXACIN [Concomitant]
     Active Substance: MOXIFLOXACIN
     Indication: Evidence based treatment
     Route: 065
     Dates: start: 20230713, end: 20230723

REACTIONS (6)
  - Pulmonary nocardiosis [Unknown]
  - White blood cell count decreased [Recovered/Resolved]
  - Abdominal discomfort [Unknown]
  - Nausea [Unknown]
  - Vomiting [Unknown]
  - Haemoglobin decreased [Recovered/Resolved]
